FAERS Safety Report 16169503 (Version 1)
Quarter: 2019Q2

REPORT INFORMATION
  Report Type: Spontaneous
  Country: US (occurrence: US)
  Receive Date: 20190408
  Receipt Date: 20190408
  Transmission Date: 20190711
  Serious: Yes (Other)
  Sender: FDA-Public Use
  Company Number: US-MYLANLABS-2019M1028366

PATIENT
  Sex: Male
  Weight: 33 kg

DRUGS (6)
  1. GUANFACINE. [Suspect]
     Active Substance: GUANFACINE
     Indication: ATTENTION DEFICIT/HYPERACTIVITY DISORDER
     Dosage: UNK
  2. CLONIDINE. [Suspect]
     Active Substance: CLONIDINE
     Indication: ATTENTION DEFICIT/HYPERACTIVITY DISORDER
     Dosage: UNK
     Route: 048
  3. CLONIDINE. [Suspect]
     Active Substance: CLONIDINE
     Indication: OPPOSITIONAL DEFIANT DISORDER
  4. GUANFACINE. [Suspect]
     Active Substance: GUANFACINE
     Indication: DISRUPTIVE MOOD DYSREGULATION DISORDER
  5. CLONIDINE. [Suspect]
     Active Substance: CLONIDINE
     Indication: DISRUPTIVE MOOD DYSREGULATION DISORDER
  6. GUANFACINE. [Suspect]
     Active Substance: GUANFACINE
     Indication: OPPOSITIONAL DEFIANT DISORDER

REACTIONS (3)
  - Aggression [Not Recovered/Not Resolved]
  - Drug ineffective [Unknown]
  - Intentional self-injury [Not Recovered/Not Resolved]
